FAERS Safety Report 25333364 (Version 2)
Quarter: 2025Q2

REPORT INFORMATION
  Report Type: Report from Study
  Country: CA (occurrence: CA)
  Receive Date: 20250520
  Receipt Date: 20250523
  Transmission Date: 20250717
  Serious: No
  Sender: ABBVIE
  Company Number: CA-ABBVIE-6281713

PATIENT
  Sex: Female

DRUGS (1)
  1. RINVOQ [Suspect]
     Active Substance: UPADACITINIB
     Indication: Rheumatoid arthritis
     Route: 048

REACTIONS (6)
  - Back disorder [Unknown]
  - Arthropathy [Unknown]
  - Pain in extremity [Unknown]
  - Eye haemorrhage [Unknown]
  - Vitreous floaters [Unknown]
  - Gait inability [Unknown]
